APPROVED DRUG PRODUCT: CLINDAMYCIN HYDROCHLORIDE
Active Ingredient: CLINDAMYCIN HYDROCHLORIDE
Strength: EQ 75MG BASE
Dosage Form/Route: CAPSULE;ORAL
Application: A063027 | Product #001
Applicant: TEVA PHARMACEUTICALS USA INC
Approved: Sep 20, 1989 | RLD: No | RS: No | Type: DISCN